FAERS Safety Report 24394665 (Version 1)
Quarter: 2024Q4

REPORT INFORMATION
  Report Type: Spontaneous
  Country: ES (occurrence: ES)
  Receive Date: 20241004
  Receipt Date: 20241004
  Transmission Date: 20250115
  Serious: Yes (Life-Threatening, Hospitalization)
  Sender: HETERO
  Company Number: None

PATIENT
  Age: 57 Year
  Sex: Female
  Weight: 58.8 kg

DRUGS (5)
  1. FLUOXETINE [Interacting]
     Active Substance: FLUOXETINE HYDROCHLORIDE
     Indication: Personality disorder
     Dosage: UNK
     Route: 048
     Dates: start: 20240901, end: 20240901
  2. TOPIRAMATE [Interacting]
     Active Substance: TOPIRAMATE
     Indication: Suicide attempt
     Dosage: UNK
     Route: 048
     Dates: start: 20240901, end: 20240901
  3. QUETIAPINE [Interacting]
     Active Substance: QUETIAPINE
     Indication: Suicide attempt
     Dosage: 6 GRAM (60X100 MILLIGRAM)
     Route: 048
     Dates: start: 20240901, end: 20240901
  4. CLORAZEPATE DIPOTASSIUM [Interacting]
     Active Substance: CLORAZEPATE DIPOTASSIUM
     Indication: Suicide attempt
     Dosage: UNK
     Route: 048
     Dates: start: 20240901, end: 20240901
  5. LORMETAZEPAM [Interacting]
     Active Substance: LORMETAZEPAM
     Indication: Suicide attempt
     Dosage: UNK
     Route: 048
     Dates: start: 20240901, end: 20240901

REACTIONS (2)
  - Depressed level of consciousness [Recovered/Resolved]
  - Product use in unapproved indication [Unknown]

NARRATIVE: CASE EVENT DATE: 20240901
